FAERS Safety Report 9831779 (Version 1)
Quarter: 2014Q1

REPORT INFORMATION
  Report Type: Spontaneous
  Country: US (occurrence: US)
  Receive Date: 20140121
  Receipt Date: 20140121
  Transmission Date: 20141002
  Serious: No
  Sender: FDA-Public Use
  Company Number: US-PFIZER INC-2014013909

PATIENT
  Sex: Male

DRUGS (16)
  1. BENZYLPENICILLIN POTASSIUM [Suspect]
     Dosage: UNK
  2. DIFLUCAN [Suspect]
     Dosage: UNK
  3. DILANTIN [Suspect]
     Dosage: UNK
  4. HYDROCHLOROTHIAZIDE [Suspect]
     Dosage: UNK
  5. VIAGRA [Suspect]
     Dosage: UNK
  6. MOBIC [Suspect]
     Dosage: UNK
  7. NIASPAN [Suspect]
     Dosage: UNK
  8. SYNTHROID [Suspect]
     Dosage: UNK
  9. ZESTRIL [Suspect]
     Dosage: UNK
  10. DARVON [Suspect]
     Dosage: UNK
  11. LESCOL [Suspect]
     Dosage: UNK
  12. BIAXIN [Suspect]
     Dosage: UNK
  13. LORTAB [Suspect]
     Dosage: UNK
  14. PHENOBARBITAL [Suspect]
     Dosage: UNK
  15. TICLID [Suspect]
     Dosage: UNK
  16. TRICOR [Suspect]
     Dosage: UNK

REACTIONS (1)
  - Drug hypersensitivity [Unknown]
